FAERS Safety Report 5530627-5 (Version None)
Quarter: 2007Q4

REPORT INFORMATION
  Report Type: 
  Country: None (occurrence: None)
  Receive Date: 20071130
  Receipt Date: 20071121
  Transmission Date: 20080405
  Serious: Yes (Other)
  Sender: FDA-Public Use
  Company Number: B0459230A

PATIENT
  Age: 64 Year
  Sex: Female

DRUGS (5)
  1. TYKERB [Suspect]
     Dosage: 1250MG PER DAY
     Route: 048
     Dates: start: 20070208, end: 20070220
  2. XELODA [Suspect]
     Route: 048
     Dates: start: 20070208, end: 20070220
  3. TAXOTERE [Suspect]
     Route: 042
     Dates: end: 20070101
  4. THIOTEPA [Suspect]
     Route: 065
  5. CYCLOPHOSPHAMIDE [Concomitant]
     Route: 065

REACTIONS (5)
  - CONDITION AGGRAVATED [None]
  - DERMATITIS [None]
  - ERYTHEMA [None]
  - HYPERKERATOSIS [None]
  - SKIN FISSURES [None]
